FAERS Safety Report 9815545 (Version 1)
Quarter: 2014Q1

REPORT INFORMATION
  Report Type: Spontaneous
  Country: US (occurrence: US)
  Receive Date: 20140114
  Receipt Date: 20140114
  Transmission Date: 20141002
  Serious: No
  Sender: FDA-Public Use
  Company Number: US-JNJFOC-20140103811

PATIENT
  Age: 23 Year
  Sex: Male
  Weight: 147.42 kg

DRUGS (5)
  1. INVEGA SUSTENNA [Suspect]
     Indication: SUBSTANCE-INDUCED PSYCHOTIC DISORDER
     Route: 030
     Dates: start: 201307
  2. INVEGA SUSTENNA [Suspect]
     Indication: ASPERGER^S DISORDER
     Route: 030
     Dates: start: 201307
  3. INVEGA SUSTENNA [Suspect]
     Indication: SCHIZOPHRENIA
     Route: 030
     Dates: start: 201307
  4. TRAZODONE [Concomitant]
     Route: 065
  5. GINSENG [Concomitant]
     Route: 065

REACTIONS (3)
  - Eye movement disorder [Unknown]
  - Drug ineffective [Unknown]
  - Inappropriate schedule of drug administration [Unknown]
